FAERS Safety Report 8382482-6 (Version None)
Quarter: 2012Q2

REPORT INFORMATION
  Report Type: 
  Country: None (occurrence: None)
  Receive Date: 20120522
  Receipt Date: 20110615
  Transmission Date: 20120825
  Serious: Yes (Other)
  Sender: FDA-Public Use
  Company Number: 2011-01933

PATIENT
  Age: 89 Year
  Sex: Female

DRUGS (8)
  1. IBUPROFEN [Concomitant]
  2. BENDROFLUMETHIAZIDE [Concomitant]
  3. ZAPAIN [Concomitant]
  4. THIAZIDE [Concomitant]
  5. ATENOLOL [Concomitant]
  6. OMEPRAZOLE [Concomitant]
  7. IMMUCYST [Suspect]
     Indication: BLADDER CANCER
     Dosage: 81.0 MG I.VES., BLADDER
     Dates: start: 20110104, end: 20110208
  8. ACETAMINOPHEN AND CODEINE PHOSPHATE [Concomitant]

REACTIONS (1)
  - RETINAL HAEMORRHAGE [None]
